FAERS Safety Report 4393862-8 (Version None)
Quarter: 2004Q3

REPORT INFORMATION
  Report Type: 
  Country: None (occurrence: None)
  Receive Date: 20040701
  Receipt Date: 20040623
  Transmission Date: 20050211
  Serious: Yes (Life-Threatening, Hospitalization)
  Sender: FDA-Public Use
  Company Number: 207357

PATIENT
  Age: 62 Year
  Sex: Female
  Weight: 88.4 kg

DRUGS (14)
  1. XOLAIR [Suspect]
     Indication: ASTHMA
     Dosage: 1.25 ML SUBCUTANEOUS
     Route: 058
     Dates: start: 20040616
  2. GLUCOPHAGE [Concomitant]
  3. FLOMAX [Concomitant]
  4. PRILOSEC [Concomitant]
  5. ALBUTEROL (ALBUTEROL, ALBUTEROL SULFATE) [Concomitant]
  6. ASPIRIN [Concomitant]
  7. SINGULAIR [Concomitant]
  8. ADVAIR (SALMETEROL XINAFOATE, FLUTICASONE PROPIONATE) [Concomitant]
  9. HYDROCODONE/ACETAMINOPHEN (ACETAMINOPHEN, HYDROCODONE BITARTRATE) [Concomitant]
  10. SULINDAC [Concomitant]
  11. NEURONTIN [Concomitant]
  12. RHINCORT (BUDESONIDE) [Concomitant]
  13. ATACAND [Concomitant]
  14. MIACALCIN (SALCATONIN) [Concomitant]

REACTIONS (1)
  - CEREBROVASCULAR ACCIDENT [None]
